FAERS Safety Report 5671009-5 (Version None)
Quarter: 2008Q1

REPORT INFORMATION
  Report Type: 
  Country: None (occurrence: None)
  Receive Date: 20080312
  Receipt Date: 20080228
  Transmission Date: 20080703
  Serious: Yes (Other)
  Sender: FDA-Public Use
  Company Number: CHPA2008US03738

PATIENT
  Age: 67 Year
  Sex: Female

DRUGS (4)
  1. GAS-X EXTSTR CHEWABLE TABS CHERRY CREME (NCH) (SIMETHICONE) CHEWABLE T [Suspect]
     Indication: FLATULENCE
     Dosage: 250 MG, TID X 1 MONTH, ORAL
     Route: 048
  2. LEVOXYL [Concomitant]
  3. ACIPHEX [Concomitant]
  4. PREMPHASE (PREMARIN;CYCRIN 14/14) [Concomitant]

REACTIONS (4)
  - ASTHENIA [None]
  - FEELING COLD [None]
  - SELF-MEDICATION [None]
  - VAGINAL HAEMORRHAGE [None]
